FAERS Safety Report 20837938 (Version 1)
Quarter: 2022Q2

REPORT INFORMATION
  Report Type: Spontaneous
  Country: US (occurrence: US)
  Receive Date: 20220517
  Receipt Date: 20220517
  Transmission Date: 20220721
  Serious: No
  Sender: FDA-Public Use
  Company Number: US-ALLERGAN-2127716US

PATIENT

DRUGS (3)
  1. KYBELLA [Suspect]
     Active Substance: DEOXYCHOLIC ACID
     Indication: Fat tissue increased
     Dosage: UNK UNK, SINGLE
     Dates: start: 20210706, end: 20210706
  2. KYBELLA [Suspect]
     Active Substance: DEOXYCHOLIC ACID
     Dosage: UNK UNK, SINGLE
     Dates: start: 20210508, end: 20210508
  3. KYBELLA [Suspect]
     Active Substance: DEOXYCHOLIC ACID
     Dosage: UNK UNK, SINGLE
     Dates: start: 20210410, end: 20210410

REACTIONS (1)
  - Muscle tightness [Unknown]

NARRATIVE: CASE EVENT DATE: 20210709
